FAERS Safety Report 11981617 (Version 8)
Quarter: 2017Q1

REPORT INFORMATION
  Report Type: Report from Study
  Country: IT (occurrence: IT)
  Receive Date: 20160131
  Receipt Date: 20170213
  Transmission Date: 20170428
  Serious: Yes (Other)
  Sender: FDA-Public Use
  Company Number: PHHY2014IT060915

PATIENT
  Age: 21 Year
  Sex: Female

DRUGS (4)
  1. GILENYA [Suspect]
     Active Substance: FINGOLIMOD HYDROCHLORIDE
     Dosage: 0.5 MG, QOD
     Route: 048
  2. GILENYA [Suspect]
     Active Substance: FINGOLIMOD HYDROCHLORIDE
     Dosage: QD
     Route: 048
     Dates: start: 20150930, end: 20151029
  3. GILENYA [Suspect]
     Active Substance: FINGOLIMOD HYDROCHLORIDE
     Indication: MULTIPLE SCLEROSIS
     Dosage: 0.5 MG, QD
     Route: 048
     Dates: start: 20131126, end: 20150714
  4. GILENYA [Suspect]
     Active Substance: FINGOLIMOD HYDROCHLORIDE
     Dosage: QD
     Route: 048
     Dates: start: 20150715, end: 20150929

REACTIONS (10)
  - Asthma [Not Recovered/Not Resolved]
  - Lymphopenia [Unknown]
  - White blood cell count decreased [Unknown]
  - Hypoaesthesia [Recovered/Resolved]
  - Prescribed underdose [Unknown]
  - Paraesthesia [Not Recovered/Not Resolved]
  - Anal hypoaesthesia [Recovered/Resolved]
  - Interstitial lung disease [Unknown]
  - Dyspnoea [Recovered/Resolved]
  - Bronchitis [Unknown]

NARRATIVE: CASE EVENT DATE: 20131210
